FAERS Safety Report 19884366 (Version 2)
Quarter: 2021Q4

REPORT INFORMATION
  Report Type: Report from Study
  Country: US (occurrence: US)
  Receive Date: 20210927
  Receipt Date: 20211117
  Transmission Date: 20220303
  Serious: Yes (Other)
  Sender: FDA-Public Use
  Company Number: US-ABBVIE-21K-163-4084765-00

PATIENT
  Sex: Female
  Weight: 50.848 kg

DRUGS (5)
  1. HUMIRA [Suspect]
     Active Substance: ADALIMUMAB
     Indication: Rheumatoid arthritis
     Dosage: CITRATE FREE
     Route: 058
     Dates: start: 2018, end: 2019
  2. HUMIRA [Suspect]
     Active Substance: ADALIMUMAB
     Indication: Fibromyalgia
     Dosage: CITRATE FREE
     Route: 058
     Dates: start: 2019, end: 202109
  3. HUMIRA [Suspect]
     Active Substance: ADALIMUMAB
     Indication: Ankylosing spondylitis
  4. MODERNA COVID-19 VACCINE [Concomitant]
     Active Substance: CX-024414
     Indication: COVID-19 immunisation
     Dosage: 1ST DOSE
     Route: 030
     Dates: start: 202104, end: 202104
  5. MODERNA COVID-19 VACCINE [Concomitant]
     Active Substance: CX-024414
     Dosage: 2ND DOSE
     Route: 030
     Dates: start: 202105, end: 202105

REACTIONS (9)
  - Biliary obstruction [Recovering/Resolving]
  - Gallbladder obstruction [Recovering/Resolving]
  - Weight decreased [Recovering/Resolving]
  - Secretion discharge [Unknown]
  - Feeding disorder [Not Recovered/Not Resolved]
  - Vomiting [Unknown]
  - Diarrhoea [Unknown]
  - Musculoskeletal chest pain [Not Recovered/Not Resolved]
  - Arteriosclerosis [Recovering/Resolving]

NARRATIVE: CASE EVENT DATE: 20210101
